FAERS Safety Report 7707223-4 (Version None)
Quarter: 2011Q3

REPORT INFORMATION
  Report Type: 
  Country: None (occurrence: None)
  Receive Date: 20110824
  Receipt Date: 20110815
  Transmission Date: 20111222
  Serious: Yes (Hospitalization, Other)
  Sender: FDA-Public Use
  Company Number: US-PURDUE-USA-2011-0073626

PATIENT
  Age: 69 Year
  Sex: Male
  Weight: 89.796 kg

DRUGS (4)
  1. SENOKOT [Suspect]
     Indication: PRODUCT USED FOR UNKNOWN INDICATION
  2. AXITINIB [Suspect]
     Indication: METASTATIC RENAL CELL CARCINOMA
     Dosage: 3 MG, BID
     Route: 048
     Dates: start: 20110208, end: 20110703
  3. COLACE CAPSULES [Suspect]
     Indication: PRODUCT USED FOR UNKNOWN INDICATION
  4. MIRALAX [Suspect]
     Indication: PRODUCT USED FOR UNKNOWN INDICATION
     Dosage: UNK

REACTIONS (3)
  - DEHYDRATION [None]
  - VOMITING [None]
  - DIARRHOEA [None]
